FAERS Safety Report 12853756 (Version 11)
Quarter: 2017Q1

REPORT INFORMATION
  Report Type: Report from Study
  Country: CA (occurrence: CA)
  Receive Date: 20161017
  Receipt Date: 20170105
  Transmission Date: 20170428
  Serious: Yes (Hospitalization, Other)
  Sender: FDA-Public Use
  Company Number: PHHY2016CA122927

PATIENT
  Age: 75 Year
  Sex: Male

DRUGS (4)
  1. SANDOSTATIN [Suspect]
     Active Substance: OCTREOTIDE ACETATE
     Indication: CARCINOID TUMOUR
     Dosage: UNK
     Route: 058
  2. METOPROLOL. [Suspect]
     Active Substance: METOPROLOL
     Indication: PRODUCT USED FOR UNKNOWN INDICATION
     Dosage: 6.25 MG, BID
     Route: 065
  3. SANDOSTATIN LAR DEPOT [Suspect]
     Active Substance: OCTREOTIDE ACETATE
     Indication: CARCINOID TUMOUR
     Dosage: 30 MG, EVERY 4 WEEKS
     Route: 030
     Dates: start: 20160726
  4. CREON [Concomitant]
     Active Substance: PANCRELIPASE AMYLASE\PANCRELIPASE LIPASE\PANCRELIPASE PROTEASE
     Indication: PRODUCT USED FOR UNKNOWN INDICATION
     Dosage: 1-2 TABLETS DAILY
     Route: 048

REACTIONS (10)
  - Intervertebral disc protrusion [Recovering/Resolving]
  - Gait disturbance [Unknown]
  - Injection site pain [Unknown]
  - Back pain [Unknown]
  - Pain [Unknown]
  - Pain in extremity [Unknown]
  - Confusional state [Unknown]
  - Speech disorder [Unknown]
  - Eating disorder [Unknown]
  - Dizziness [Unknown]

NARRATIVE: CASE EVENT DATE: 201608
